FAERS Safety Report 5323375-8 (Version None)
Quarter: 2007Q2

REPORT INFORMATION
  Report Type: 
  Country: None (occurrence: None)
  Receive Date: 20070514
  Receipt Date: 20070503
  Transmission Date: 20071010
  Serious: Yes (Hospitalization)
  Sender: FDA-Public Use
  Company Number: PHHO2006FR20125

PATIENT
  Age: 69 Year
  Sex: Male

DRUGS (3)
  1. CYCLOSPORINE [Suspect]
     Indication: RENAL TRANSPLANT
     Dosage: 250 MG/DAY
     Route: 048
     Dates: start: 20061019
  2. CELLCEPT [Suspect]
     Indication: RENAL TRANSPLANT
     Dosage: 1.5 G/DAY
     Route: 048
     Dates: start: 20061016
  3. CORTANCYL [Suspect]
     Indication: RENAL TRANSPLANT
     Dosage: 7.5 MG/DAY
     Route: 048
     Dates: start: 20061110

REACTIONS (5)
  - BLOOD CREATININE INCREASED [None]
  - POLYP [None]
  - POLYPECTOMY [None]
  - PSEUDOMONAS INFECTION [None]
  - RECTAL HAEMORRHAGE [None]
